FAERS Safety Report 22324883 (Version 1)
Quarter: 2023Q2

REPORT INFORMATION
  Report Type: Spontaneous
  Country: CN (occurrence: CN)
  Receive Date: 20230516
  Receipt Date: 20230516
  Transmission Date: 20230722
  Serious: Yes (Other)
  Sender: FDA-Public Use
  Company Number: CN-PFIZER INC-202300188291

PATIENT
  Age: 68 Year
  Sex: Female

DRUGS (1)
  1. LORBRENA [Suspect]
     Active Substance: LORLATINIB
     Indication: Non-small cell lung cancer metastatic
     Dosage: 300 MG, DAILY
     Route: 048
     Dates: start: 202304

REACTIONS (6)
  - Hallucination [Unknown]
  - Heart rate increased [Unknown]
  - Cognitive disorder [Unknown]
  - Disorganised speech [Unknown]
  - Gait inability [Unknown]
  - Off label use [Unknown]

NARRATIVE: CASE EVENT DATE: 20230401
